FAERS Safety Report 9582730 (Version 1)
Quarter: 2013Q4

REPORT INFORMATION
  Report Type: Spontaneous
  Country: US (occurrence: US)
  Receive Date: 20131002
  Receipt Date: 20131002
  Transmission Date: 20140711
  Serious: No
  Sender: FDA-Public Use
  Company Number: US-AMGEN-USASP2013042502

PATIENT
  Age: 53 Year
  Sex: Female
  Weight: 114.29 kg

DRUGS (12)
  1. ENBREL [Suspect]
     Indication: PRODUCT USED FOR UNKNOWN INDICATION
     Dosage: 50 MG, QWK
     Route: 058
  2. BUMEX [Concomitant]
     Dosage: 1 MG, UNK
  3. SINGULAIR [Concomitant]
     Dosage: 5 MG, UNK
  4. PLAQUENIL                          /00072602/ [Concomitant]
     Dosage: 200 MG, UNK
  5. NASONEX [Concomitant]
     Dosage: 50 MUG, UNK
  6. ALLEGRA [Concomitant]
     Dosage: 180 MG, UNK
  7. LISINOPRIL [Concomitant]
     Dosage: 10 MG, UNK
  8. OMEPRAZOLE [Concomitant]
     Dosage: 10 MG, UNK
  9. CELEXA                             /00582602/ [Concomitant]
     Dosage: 20 MG, UNK
  10. MULTIVITAMINS, PLAIN [Concomitant]
     Dosage: UNK
  11. FOLIC ACID [Concomitant]
     Dosage: UNK
  12. METHOTREXATE [Concomitant]
     Dosage: 20 MG, UNK

REACTIONS (1)
  - Injection site pain [Unknown]
